FAERS Safety Report 23097142 (Version 1)
Quarter: 2023Q4

REPORT INFORMATION
  Report Type: Spontaneous
  Country: TR (occurrence: TR)
  Receive Date: 20231023
  Receipt Date: 20231023
  Transmission Date: 20240110
  Serious: Yes (Other)
  Sender: FDA-Public Use
  Company Number: TR-SUN PHARMACEUTICAL INDUSTRIES LTD-2023R1-413440

PATIENT
  Age: 60 Year
  Sex: Male

DRUGS (3)
  1. CARBIDOPA\ENTACAPONE\LEVODOPA [Suspect]
     Active Substance: CARBIDOPA\ENTACAPONE\LEVODOPA
     Indication: Parkinson^s disease
     Dosage: 100/25/200 MILLIGRAM, 6X1
     Route: 065
  2. VENLAFAXINE [Suspect]
     Active Substance: VENLAFAXINE HYDROCHLORIDE
     Indication: Parkinson^s disease
     Dosage: 150 MILLIGRAM, DAILY
     Route: 065
  3. BENSERAZIDE\LEVODOPA [Suspect]
     Active Substance: BENSERAZIDE\LEVODOPA
     Indication: Parkinson^s disease
     Dosage: 125 MILLIGRAM, 5X1
     Route: 065

REACTIONS (1)
  - Dopamine dysregulation syndrome [Recovered/Resolved]
